FAERS Safety Report 25504007 (Version 4)
Quarter: 2025Q3

REPORT INFORMATION
  Report Type: Spontaneous
  Country: AR (occurrence: AR)
  Receive Date: 20250702
  Receipt Date: 20250818
  Transmission Date: 20251020
  Serious: Yes (Hospitalization, Other)
  Sender: BOEHRINGER INGELHEIM
  Company Number: AR-BoehringerIngelheim-2025-BI-079935

PATIENT
  Age: 21 Year
  Sex: Female
  Weight: 148 kg

DRUGS (1)
  1. SPEVIGO [Suspect]
     Active Substance: SPESOLIMAB-SBZO
     Indication: Generalised pustular psoriasis

REACTIONS (6)
  - Escherichia bacteraemia [Not Recovered/Not Resolved]
  - Urosepsis [Unknown]
  - Pyrexia [Unknown]
  - Device related sepsis [Unknown]
  - Klebsiella bacteraemia [Recovered/Resolved]
  - Pyrexia [Not Recovered/Not Resolved]

NARRATIVE: CASE EVENT DATE: 20250626
